FAERS Safety Report 18055433 (Version 1)
Quarter: 2020Q3

REPORT INFORMATION
  Report Type: Spontaneous
  Country: GB (occurrence: GB)
  Receive Date: 20200722
  Receipt Date: 20200722
  Transmission Date: 20201103
  Serious: Yes (Death, Other)
  Sender: FDA-Public Use
  Company Number: GB-FRESENIUS KABI-FK202007446

PATIENT
  Age: 67 Year
  Sex: Male

DRUGS (4)
  1. BORTEZOMIB. [Suspect]
     Active Substance: BORTEZOMIB
     Indication: IMMUNOSUPPRESSANT DRUG THERAPY
     Route: 065
     Dates: start: 201604
  2. MELPHALAN. [Suspect]
     Active Substance: MELPHALAN
     Indication: IMMUNOSUPPRESSANT DRUG THERAPY
     Route: 065
     Dates: start: 201701
  3. THALIDOMIDE [Suspect]
     Active Substance: THALIDOMIDE
     Indication: IMMUNOSUPPRESSANT DRUG THERAPY
     Route: 065
     Dates: start: 201604
  4. DEXAMETHASONE INJECTION (MANUFACTURER UNKNOWN) [Suspect]
     Active Substance: DEXAMETHASONE
     Indication: IMMUNOSUPPRESSANT DRUG THERAPY
     Route: 065
     Dates: start: 201604

REACTIONS (7)
  - Herpes zoster [Unknown]
  - Device related thrombosis [Unknown]
  - Escherichia sepsis [Unknown]
  - JC virus infection [Unknown]
  - Neutropenic sepsis [Unknown]
  - Progressive multifocal leukoencephalopathy [Unknown]
  - Pneumonia [Fatal]

NARRATIVE: CASE EVENT DATE: 201703
